FAERS Safety Report 8876910 (Version 1)
Quarter: 2012Q4

REPORT INFORMATION
  Report Type: 
  Country: DE (occurrence: DE)
  Receive Date: 20121030
  Receipt Date: 20121030
  Transmission Date: 20130627
  Serious: Yes (Other)
  Sender: FDA-Public Use
  Company Number: DE-ROCHE-1148750

PATIENT
  Sex: Female

DRUGS (4)
  1. HERCEPTIN [Suspect]
     Indication: BREAST CANCER METASTATIC
     Route: 042
     Dates: start: 200605, end: 2006
  2. HERCEPTIN [Suspect]
     Route: 042
     Dates: start: 2006, end: 201208
  3. ZOMETA [Suspect]
     Indication: BREAST CANCER METASTATIC
     Route: 065
     Dates: start: 2006, end: 201206
  4. BONDRONAT [Suspect]
     Indication: BREAST CANCER METASTATIC
     Route: 065
     Dates: start: 200605, end: 2006

REACTIONS (10)
  - Nail disorder [Recovering/Resolving]
  - Onychomadesis [Recovering/Resolving]
  - Weight abnormal [Recovering/Resolving]
  - Chest pain [Recovering/Resolving]
  - Sleep disorder [Recovering/Resolving]
  - Depression [Recovering/Resolving]
  - Osteitis [Unknown]
  - Neoplasm [Recovered/Resolved]
  - Pain in extremity [Recovered/Resolved]
  - Gait disturbance [Recovered/Resolved]
